FAERS Safety Report 13261174 (Version 2)
Quarter: 2017Q1

REPORT INFORMATION
  Report Type: Spontaneous
  Country: JP (occurrence: JP)
  Receive Date: 20170222
  Receipt Date: 20170313
  Transmission Date: 20170428
  Serious: Yes (Death, Hospitalization)
  Sender: FDA-Public Use
  Company Number: JP-TEVA-741924ISR

PATIENT
  Age: 62 Year
  Sex: Female

DRUGS (18)
  1. CYCLOPHOSPHAMIDE. [Suspect]
     Active Substance: CYCLOPHOSPHAMIDE
     Indication: B-CELL LYMPHOMA STAGE IV
     Route: 065
  2. VINCRISTINE [Suspect]
     Active Substance: VINCRISTINE
     Indication: B-CELL LYMPHOMA STAGE IV
     Route: 065
  3. DEXAMETHASONE. [Concomitant]
     Active Substance: DEXAMETHASONE
     Route: 065
  4. VANCOMYCIN [Concomitant]
     Active Substance: VANCOMYCIN
     Indication: MENINGITIS
     Route: 065
  5. PYRAZINAMIDE. [Concomitant]
     Active Substance: PYRAZINAMIDE
     Indication: TUBERCULOSIS
     Dosage: 1200 MG
     Route: 065
  6. STREPTOMYCIN [Concomitant]
     Active Substance: STREPTOMYCIN\STREPTOMYCIN SULFATE
     Indication: TUBERCULOSIS
     Dosage: 750 MG
     Route: 065
  7. LEVOFLOXACIN. [Concomitant]
     Active Substance: LEVOFLOXACIN
     Indication: TUBERCULOSIS
     Route: 065
  8. RIFAMPICIN [Suspect]
     Active Substance: RIFAMPIN
     Indication: TUBERCULOSIS
     Dosage: 450 MG
     Route: 065
  9. METHOTREXATE. [Concomitant]
     Active Substance: METHOTREXATE
     Route: 065
  10. ACICLOVIR [Concomitant]
     Active Substance: ACYCLOVIR
     Indication: MENINGITIS
     Route: 065
  11. DOXORUBICIN [Suspect]
     Active Substance: DOXORUBICIN
     Indication: B-CELL LYMPHOMA STAGE IV
     Route: 065
  12. PREDNISOLONE. [Suspect]
     Active Substance: PREDNISOLONE
     Indication: B-CELL LYMPHOMA STAGE IV
     Route: 065
  13. PROCARBAZINE [Suspect]
     Active Substance: PROCARBAZINE
     Indication: B-CELL LYMPHOMA STAGE IV
     Route: 065
  14. MEROPENEM. [Concomitant]
     Active Substance: MEROPENEM
     Indication: MENINGITIS
     Route: 065
  15. ETHAMBUTOL [Concomitant]
     Active Substance: ETHAMBUTOL HYDROCHLORIDE
     Indication: TUBERCULOSIS
     Dosage: 750 MG
     Route: 065
  16. ISONIAZID. [Concomitant]
     Active Substance: ISONIAZID
     Indication: TUBERCULOSIS
     Dosage: 250 MG
     Route: 065
  17. PREDNISOLONE. [Suspect]
     Active Substance: PREDNISOLONE
     Indication: STEROID THERAPY
     Dosage: 60 MG FOR 28 DAYS, 30 MG FOR 28 DAYS, 15 MG FOR 14 DAYS, 5 MG FOR 7 DAYS SCHEDULED
     Route: 065
  18. RITUXIMAB [Suspect]
     Active Substance: RITUXIMAB
     Indication: B-CELL LYMPHOMA STAGE IV
     Route: 065

REACTIONS (4)
  - Immunosuppression [Not Recovered/Not Resolved]
  - Hepatic function abnormal [Recovering/Resolving]
  - Hydrocephalus [Fatal]
  - Meningitis tuberculous [Fatal]
